FAERS Safety Report 22610800 (Version 3)
Quarter: 2024Q1

REPORT INFORMATION
  Report Type: Report from Study
  Country: US (occurrence: US)
  Receive Date: 20230616
  Receipt Date: 20240130
  Transmission Date: 20240409
  Serious: Yes (Other)
  Sender: FDA-Public Use
  Company Number: US-ABBVIE-5291707

PATIENT
  Sex: Female

DRUGS (2)
  1. IMBRUVICA [Suspect]
     Active Substance: IBRUTINIB
     Indication: Chronic lymphocytic leukaemia
     Dosage: TIME INTERVAL: 0.33333333 DAYS: FORM STRENGTH: 140 MILLIGRAM
     Route: 048
     Dates: start: 20141206, end: 20180414
  2. IMBRUVICA [Suspect]
     Active Substance: IBRUTINIB
     Indication: Chronic lymphocytic leukaemia
     Dosage: FORM STRENGTH: 420 MILLIGRAM
     Route: 048
     Dates: start: 201804

REACTIONS (3)
  - Cataract [Unknown]
  - Asthenia [Unknown]
  - Eye disorder [Unknown]
